FAERS Safety Report 10886715 (Version 2)
Quarter: 2015Q2

REPORT INFORMATION
  Report Type: Spontaneous
  Country: US (occurrence: US)
  Receive Date: 20150304
  Receipt Date: 20150529
  Transmission Date: 20150821
  Serious: No
  Sender: FDA-Public Use
  Company Number: US-009507513-1502USA009868

PATIENT
  Age: 78 Year
  Sex: Male

DRUGS (4)
  1. PLETAL [Concomitant]
     Active Substance: CILOSTAZOL
     Dosage: UNK
     Dates: start: 2007
  2. ZOCOR [Suspect]
     Active Substance: SIMVASTATIN
     Route: 048
  3. ZOCOR [Suspect]
     Active Substance: SIMVASTATIN
     Dosage: UNK
  4. VYTORIN [Suspect]
     Active Substance: EZETIMIBE\SIMVASTATIN
     Dosage: 10/20 MG, DAILY
     Route: 048
     Dates: start: 201501, end: 2015

REACTIONS (7)
  - Fatigue [Unknown]
  - Movement disorder [Recovering/Resolving]
  - Back injury [Recovering/Resolving]
  - Malaise [Recovering/Resolving]
  - Musculoskeletal chest pain [Recovering/Resolving]
  - Fall [Recovering/Resolving]
  - Fatigue [Recovering/Resolving]

NARRATIVE: CASE EVENT DATE: 2015
